FAERS Safety Report 4995854-4 (Version None)
Quarter: 2006Q2

REPORT INFORMATION
  Report Type: 
  Country: None (occurrence: None)
  Receive Date: 20060504
  Receipt Date: 20060421
  Transmission Date: 20061013
  Serious: Yes (Death)
  Sender: FDA-Public Use
  Company Number: 216642

PATIENT
  Age: 66 Year
  Sex: Male
  Weight: 92 kg

DRUGS (31)
  1. RITUXIMAB (RITUXIMAB) CONC FOR SOLUTION FOR INFUSION [Suspect]
     Indication: CHRONIC LYMPHOCYTIC LEUKAEMIA
     Dosage: 500 MG/M2, INTRAVENOUS
     Route: 042
     Dates: start: 20050407, end: 20050519
  2. FLUDARABINE [Suspect]
     Indication: CHRONIC LYMPHOCYTIC LEUKAEMIA
     Dosage: 25 MG/M2, INTRAVENOUS
     Route: 042
     Dates: start: 20050408, end: 20050521
  3. CYCLOPHOSPHAMIDE [Suspect]
     Indication: CHRONIC LYMPHOCYTIC LEUKAEMIA
     Dosage: 250 MG/M2, Q28D, INTRAVENOUS
     Route: 042
     Dates: start: 20050408, end: 20050521
  4. STEROFUNDIN [Concomitant]
  5. FUROSEMIDUM (FUROSEMIDE) [Concomitant]
  6. VORICONAZOLE [Concomitant]
  7. IMIPENEM [Concomitant]
  8. IMMUNE GLOBULIN INTRAVENOUS (HUMAN) [Concomitant]
  9. NEUPOGEN [Concomitant]
  10. METOPROLOL TARTRATE [Concomitant]
  11. ISOSORBIDE MONONITRATE [Concomitant]
  12. ALLOPURINOL [Concomitant]
  13. AMLODIPINE BESYLATE [Concomitant]
  14. VALIUM [Concomitant]
  15. ENALAPRIL MALEATE [Concomitant]
  16. VANCOMYCIN HYDROCHLORIDE [Concomitant]
  17. SALINE INFUSION (SODIUM CHLORIDE) [Concomitant]
  18. PANTOPRAZOLE [Concomitant]
  19. FINASTERIDE [Concomitant]
  20. ACICLOVIRUM (ACYCLOVIR) [Concomitant]
  21. PLATELETS [Concomitant]
  22. ETAMSYLATE (ETHAMYSLATE) [Concomitant]
  23. TRANEXAMIC ACID [Concomitant]
  24. OXYGEN THERAPY (OXYGEN) [Concomitant]
  25. CIPROFLOXACIN HCL (CIPROFLOXACIN HYDROCHLORIDE) [Concomitant]
  26. SULFAMERAZIN W TRIMETHOPRIM (SULFAMERAZINE, TRIMETHOPRIM) [Concomitant]
  27. ACETAMINOPHEN [Concomitant]
  28. LORATADINE [Concomitant]
  29. MOXIFLOXACIN HCL [Concomitant]
  30. PROPOFOL [Concomitant]
  31. MORFIN (RPHINE SULFATE)MO [Concomitant]

REACTIONS (33)
  - ACTIVATED PARTIAL THROMBOPLASTIN TIME PROLONGED [None]
  - ANAEMIA [None]
  - BACTERIA SPUTUM IDENTIFIED [None]
  - BILE DUCT STONE [None]
  - BLOOD PRESSURE DECREASED [None]
  - BRONCHITIS [None]
  - CARDIAC MURMUR [None]
  - CHOLELITHIASIS [None]
  - CITROBACTER INFECTION [None]
  - CONDITION AGGRAVATED [None]
  - ENTEROCOCCAL INFECTION [None]
  - FAECES DISCOLOURED [None]
  - GASTROINTESTINAL HAEMORRHAGE [None]
  - HAEMATEMESIS [None]
  - HAEMOPTYSIS [None]
  - HEPATIC ENZYME INCREASED [None]
  - HEPATOMEGALY [None]
  - INFLAMMATION [None]
  - INTERNATIONAL NORMALISED RATIO INCREASED [None]
  - LABORATORY TEST ABNORMAL [None]
  - LUNG DISORDER [None]
  - NEUTROPENIA [None]
  - NEUTROPHIL PERCENTAGE INCREASED [None]
  - PNEUMONIA [None]
  - PROTHROMBIN TIME PROLONGED [None]
  - PYREXIA [None]
  - RENAL CYST [None]
  - SEPTIC SHOCK [None]
  - SPLENOMEGALY [None]
  - THERAPY NON-RESPONDER [None]
  - THROMBOCYTOPENIA [None]
  - UNEVALUABLE EVENT [None]
  - WHITE BLOOD CELL COUNT DECREASED [None]
